FAERS Safety Report 23499893 (Version 1)
Quarter: 2024Q1

REPORT INFORMATION
  Report Type: Spontaneous
  Country: US (occurrence: US)
  Receive Date: 20240208
  Receipt Date: 20240208
  Transmission Date: 20240410
  Serious: Yes (Hospitalization)
  Sender: FDA-Public Use
  Company Number: US-BIOVITRUM-2024-US-001944

PATIENT
  Age: 5 Month
  Sex: Male
  Weight: 4.08 kg

DRUGS (3)
  1. SYNAGIS [Suspect]
     Active Substance: PALIVIZUMAB
     Indication: Bronchopulmonary dysplasia
     Dosage: ONCE A MONTH
     Route: 030
     Dates: start: 202311
  2. SYNAGIS [Suspect]
     Active Substance: PALIVIZUMAB
     Indication: Illness
  3. SYNAGIS [Suspect]
     Active Substance: PALIVIZUMAB
     Indication: Premature baby

REACTIONS (1)
  - Inguinal hernia [Unknown]
